FAERS Safety Report 7501353-8 (Version None)
Quarter: 2011Q2

REPORT INFORMATION
  Report Type: 
  Country: None (occurrence: None)
  Receive Date: 20110524
  Receipt Date: 20110511
  Transmission Date: 20111010
  Serious: Yes (Hospitalization, Other)
  Sender: FDA-Public Use
  Company Number: US-BAYER-2010-003142

PATIENT
  Age: 19 Year
  Sex: Female
  Weight: 62 kg

DRUGS (4)
  1. HYOMAX [Concomitant]
     Dosage: UNK
     Dates: start: 20080130
  2. CLINDAMYCIN [Concomitant]
     Dosage: UNK
     Dates: start: 20080701
  3. YAZ [Suspect]
     Indication: PRODUCT USED FOR UNKNOWN INDICATION
     Dosage: UNK
     Dates: start: 20070501, end: 20090101
  4. NEXIUM [Concomitant]
     Dosage: UNK
     Dates: start: 20081228

REACTIONS (4)
  - PAIN [None]
  - CHOLECYSTITIS CHRONIC [None]
  - INJURY [None]
  - CHOLECYSTECTOMY [None]
